FAERS Safety Report 13798278 (Version 1)
Quarter: 2017Q3

REPORT INFORMATION
  Report Type: Spontaneous
  Country: US (occurrence: US)
  Receive Date: 20170726
  Receipt Date: 20170726
  Transmission Date: 20171127
  Serious: Yes (Hospitalization)
  Sender: FDA-Public Use
  Company Number: None

PATIENT
  Age: 90 Year
  Sex: Male

DRUGS (2)
  1. IBUPROFEN. [Suspect]
     Active Substance: IBUPROFEN
     Indication: PAIN
     Dates: start: 20170101, end: 20170505
  2. WARFARIN [Suspect]
     Active Substance: WARFARIN
     Indication: ATRIAL FIBRILLATION
     Dates: start: 20010101

REACTIONS (4)
  - Gastrointestinal haemorrhage [None]
  - Haemoglobin decreased [None]
  - International normalised ratio increased [None]
  - Haematocrit decreased [None]

NARRATIVE: CASE EVENT DATE: 20170502
